FAERS Safety Report 26181069 (Version 1)
Quarter: 2025Q4

REPORT INFORMATION
  Report Type: Spontaneous
  Country: AU (occurrence: AU)
  Receive Date: 20251221
  Receipt Date: 20251221
  Transmission Date: 20260117
  Serious: Yes (Death, Other)
  Sender: GLAXOSMITHKLINE
  Company Number: AU-GSK-AU2025161718

PATIENT
  Age: 58 Year
  Sex: Female

DRUGS (1)
  1. JEMPERLI [Suspect]
     Active Substance: DOSTARLIMAB-GXLY
     Indication: Endometrial cancer
     Dosage: UNK

REACTIONS (2)
  - Endometrial cancer [Fatal]
  - Condition aggravated [Fatal]
